FAERS Safety Report 12801038 (Version 1)
Quarter: 2016Q4

REPORT INFORMATION
  Report Type: Report from Study
  Country: US (occurrence: US)
  Receive Date: 20161003
  Receipt Date: 20161003
  Transmission Date: 20170207
  Serious: Yes (Other)
  Sender: FDA-Public Use
  Company Number: US-ROCHE-1835018

PATIENT
  Age: 62 Year
  Sex: Female
  Weight: 76.2 kg

DRUGS (4)
  1. BEVACIZUMAB [Suspect]
     Active Substance: BEVACIZUMAB
     Indication: ENDOMETRIAL CANCER
     Dosage: COURSE 1?THERAPY DISCONTINUED ON AN UNSPECIFIED DATE AFTER COURSE 3.
     Route: 042
     Dates: start: 20110621
  2. BEVACIZUMAB [Suspect]
     Active Substance: BEVACIZUMAB
     Dosage: COURSE 2?THERAPY DISCONTINUED ON AN UNSPECIFIED DATE AFTER COURSE 3.
     Route: 042
     Dates: start: 20110719
  3. PACLITAXEL. [Suspect]
     Active Substance: PACLITAXEL
     Indication: ENDOMETRIAL CANCER
     Dosage: COURSE 1-6 (THERAPY COMPLETED AFTER CYCLE 6 PER PROTOCOL)
     Route: 042
     Dates: start: 20110621, end: 20111028
  4. CARBOPLATIN. [Suspect]
     Active Substance: CARBOPLATIN
     Indication: ENDOMETRIAL CANCER
     Dosage: COURSE 1-6 (THERAPY COMPLETED AFTER CYCLE 6 PER PROTOCOL)
     Route: 042
     Dates: start: 20110621, end: 20111028

REACTIONS (6)
  - White blood cell count decreased [Unknown]
  - Diarrhoea [Unknown]
  - Hypophosphataemia [Unknown]
  - Platelet count decreased [Unknown]
  - Anaemia [Unknown]
  - Neutrophil count decreased [Unknown]
